FAERS Safety Report 19924146 (Version 1)
Quarter: 2021Q4

REPORT INFORMATION
  Report Type: Spontaneous
  Country: US (occurrence: US)
  Receive Date: 20211005
  Receipt Date: 20211005
  Transmission Date: 20220303
  Serious: Yes (Death)
  Sender: FDA-Public Use
  Company Number: None

PATIENT
  Age: 76 Year
  Sex: Male

DRUGS (1)
  1. BARICITINIB [Suspect]
     Active Substance: BARICITINIB
     Indication: COVID-19 pneumonia
     Route: 048
     Dates: start: 20210901, end: 20210913

REACTIONS (3)
  - Acute respiratory failure [None]
  - Acute respiratory distress syndrome [None]
  - COVID-19 pneumonia [None]

NARRATIVE: CASE EVENT DATE: 20210915
